APPROVED DRUG PRODUCT: FENTANYL-50
Active Ingredient: FENTANYL
Strength: 50MCG/HR
Dosage Form/Route: FILM, EXTENDED RELEASE;TRANSDERMAL
Application: A077449 | Product #002 | TE Code: AB
Applicant: DIFGEN PHARMACEUTICALS LLC
Approved: Oct 20, 2008 | RLD: No | RS: No | Type: RX